FAERS Safety Report 13104875 (Version 1)
Quarter: 2017Q1

REPORT INFORMATION
  Report Type: Spontaneous
  Country: US (occurrence: US)
  Receive Date: 20170111
  Receipt Date: 20170111
  Transmission Date: 20170428
  Serious: Yes (Other)
  Sender: FDA-Public Use
  Company Number: US-PFIZER INC-2017009571

PATIENT
  Age: 77 Year
  Sex: Male
  Weight: 78.93 kg

DRUGS (4)
  1. LYRICA [Suspect]
     Active Substance: PREGABALIN
     Indication: HYPOAESTHESIA
     Dosage: TWO 50MG CAPSULES IN THE MORNING AND TWO 50MG CAPSULES IN THE EVENING
     Dates: start: 20170106
  2. LYRICA [Suspect]
     Active Substance: PREGABALIN
     Indication: DIABETIC FOOT
     Dosage: 50 MG, 1X/DAY
     Route: 048
     Dates: start: 2016
  3. METFORMIN [Concomitant]
     Active Substance: METFORMIN HYDROCHLORIDE
     Indication: DIABETES MELLITUS
     Dosage: 500MG TABLETS TWO BY MOUTH IN THE MORNING AND EVENING
     Route: 048
  4. GLIPIZIDE. [Concomitant]
     Active Substance: GLIPIZIDE
     Indication: DIABETES MELLITUS
     Dosage: 500MG TABLETS TWO BY MOUTH IN THE MORNING AND EVENING
     Route: 048

REACTIONS (2)
  - Cerebrovascular accident [Unknown]
  - Memory impairment [Not Recovered/Not Resolved]

NARRATIVE: CASE EVENT DATE: 201612
